FAERS Safety Report 25572293 (Version 1)
Quarter: 2025Q3

REPORT INFORMATION
  Report Type: Spontaneous
  Country: CA (occurrence: CA)
  Receive Date: 20250717
  Receipt Date: 20250717
  Transmission Date: 20251021
  Serious: Yes (Life-Threatening, Disabling)
  Sender: ORGANON
  Company Number: CA-ORGANON-O2507CAN001215

PATIENT
  Age: 28 Year
  Sex: Female
  Weight: 47.619 kg

DRUGS (1)
  1. NEXPLANON [Suspect]
     Active Substance: ETONOGESTREL
     Indication: Contraception
     Route: 023

REACTIONS (1)
  - Deep vein thrombosis [Recovered/Resolved with Sequelae]
